FAERS Safety Report 12059093 (Version 2)
Quarter: 2016Q1

REPORT INFORMATION
  Report Type: Report from Study
  Country: NL (occurrence: NL)
  Receive Date: 20160210
  Receipt Date: 20160226
  Transmission Date: 20160526
  Serious: Yes (Death)
  Sender: FDA-Public Use
  Company Number: PHHY2016NL016363

PATIENT
  Age: 78 Year
  Sex: Male

DRUGS (1)
  1. ZOMETA [Suspect]
     Active Substance: ZOLEDRONIC ACID
     Indication: PROSTATE CANCER
     Dosage: 4 MG/100 ML ONCE EVERY 4 WEEK
     Route: 042

REACTIONS (3)
  - Malignant neoplasm progression [Fatal]
  - Terminal state [Fatal]
  - Prostate cancer [Fatal]

NARRATIVE: CASE EVENT DATE: 20160204
